FAERS Safety Report 4388845-8 (Version None)
Quarter: 2004Q3

REPORT INFORMATION
  Report Type: 
  Country: None (occurrence: None)
  Receive Date: 20040701
  Receipt Date: 20040701
  Transmission Date: 20050211
  Serious: Yes (Hospitalization, Other)
  Sender: FDA-Public Use
  Company Number: None

PATIENT
  Age: 73 Year
  Sex: Male
  Weight: 79.4 kg

DRUGS (7)
  1. INTEGRILIN [Suspect]
     Indication: ANTIPLATELET THERAPY
     Dosage: 2 (7.9 ML BOLUSES) 14 ML/HR IV
     Route: 042
     Dates: start: 20040507, end: 20040508
  2. FENTANYL [Concomitant]
  3. MIDAZOLAM HCL [Concomitant]
  4. CEFAZOLIN [Concomitant]
  5. PEPCID [Concomitant]
  6. ASPIRIN [Concomitant]
  7. CLOPIDOGREL [Concomitant]

REACTIONS (1)
  - POST PROCEDURAL HAEMORRHAGE [None]
